FAERS Safety Report 5616352-0 (Version None)
Quarter: 2008Q1

REPORT INFORMATION
  Report Type: 
  Country: None (occurrence: None)
  Receive Date: 20080205
  Receipt Date: 20080205
  Transmission Date: 20080703
  Serious: Yes (Other)
  Sender: FDA-Public Use
  Company Number: None

PATIENT
  Age: 44 Year
  Sex: Male
  Weight: 83.9154 kg

DRUGS (2)
  1. BUDEPRION XL -BUPROPION HCL- 300MG TEVA [Suspect]
     Indication: ANXIETY DISORDER
     Dosage: 300MG ONCE PER DAY PO
     Route: 048
     Dates: start: 20080101, end: 20080201
  2. BUDEPRION XL -BUPROPION HCL- 300MG TEVA [Suspect]
     Indication: DEPRESSION
     Dosage: 300MG ONCE PER DAY PO
     Route: 048
     Dates: start: 20080101, end: 20080201

REACTIONS (4)
  - ANXIETY [None]
  - DEPRESSION [None]
  - PHARMACEUTICAL PRODUCT COMPLAINT [None]
  - THERAPEUTIC RESPONSE UNEXPECTED WITH DRUG SUBSTITUTION [None]
